FAERS Safety Report 6507625-8 (Version None)
Quarter: 2009Q4

REPORT INFORMATION
  Report Type: 
  Country: None (occurrence: None)
  Receive Date: 20091221
  Receipt Date: 20090914
  Transmission Date: 20100525
  Serious: No
  Sender: FDA-Public Use
  Company Number: US-BRISTOL-MYERS SQUIBB COMPANY-14779045

PATIENT
  Sex: Female

DRUGS (2)
  1. PRAVACHOL [Suspect]
     Dates: end: 20090101
  2. PRAVASTATIN SODIUM [Suspect]
     Dates: end: 20090101

REACTIONS (1)
  - MYALGIA [None]
